FAERS Safety Report 7464842-0 (Version None)
Quarter: 2011Q2

REPORT INFORMATION
  Report Type: 
  Country: None (occurrence: None)
  Receive Date: 20110509
  Receipt Date: 20080314
  Transmission Date: 20111010
  Serious: Yes (Death, Other)
  Sender: FDA-Public Use
  Company Number: US-BAYER-200826595NA

PATIENT
  Age: 43 Year
  Sex: Female
  Weight: 117.91 kg

DRUGS (12)
  1. TOPROL-XL [Concomitant]
     Dosage: 25 MG, QD
  2. RENAGEL [Concomitant]
     Dosage: 2400 MG, TID
     Route: 048
  3. BENICAR [Concomitant]
     Dosage: 40 MG, QD
     Route: 048
  4. VANCOMYCIN [Concomitant]
     Dosage: 1 G, UNK
     Route: 042
     Dates: start: 20050909
  5. INSULIN [Concomitant]
     Dosage: SLIDING SCALE
     Route: 058
  6. HYDROCHLOROTHIAZIDE [Concomitant]
     Dosage: 25 MG, QD
     Route: 048
  7. ATENOLOL [Concomitant]
     Dosage: 50 MG, QD
     Route: 048
  8. TRASYLOL [Suspect]
     Indication: CORONARY ARTERY BYPASS
  9. ACETYLSALICYLIC ACID SRT [Concomitant]
     Dosage: 325 MG, QD
     Route: 048
  10. TRASYLOL [Suspect]
     Indication: MITRAL VALVE REPLACEMENT
     Dosage: UNK
     Route: 042
     Dates: start: 20050919
  11. LISINOPRIL [Concomitant]
     Dosage: 20 MG, BID
     Route: 048
  12. NAFCILLIN [Concomitant]
     Dosage: 2 G, EVERY 4 HOURS
     Route: 042

REACTIONS (13)
  - INJURY [None]
  - DEATH [None]
  - PAIN [None]
  - STRESS [None]
  - EMOTIONAL DISTRESS [None]
  - RENAL FAILURE [None]
  - RENAL INJURY [None]
  - DEPRESSION [None]
  - ANHEDONIA [None]
  - UNEVALUABLE EVENT [None]
  - RENAL IMPAIRMENT [None]
  - ANXIETY [None]
  - FEAR [None]
